FAERS Safety Report 9032432 (Version 1)
Quarter: 2013Q1

REPORT INFORMATION
  Report Type: Spontaneous
  Country: FR (occurrence: FR)
  Receive Date: 20130125
  Receipt Date: 20130125
  Transmission Date: 20140127
  Serious: Yes (Hospitalization, Other)
  Sender: FDA-Public Use
  Company Number: FR-ASTRAZENECA-2013SE00663

PATIENT
  Age: 33553 Day
  Sex: Female

DRUGS (7)
  1. MOPRAL [Suspect]
     Route: 048
     Dates: end: 20121024
  2. DAFALGAN [Suspect]
     Dosage: 500 MG AS REQUIRED
     Route: 048
     Dates: end: 20121024
  3. FLUDEX [Suspect]
     Route: 048
     Dates: end: 20121024
  4. LEVOTHYROX [Suspect]
     Indication: PRIMARY HYPOTHYROIDISM
     Route: 048
  5. FORLAX [Suspect]
     Route: 048
     Dates: end: 20121024
  6. IMOVANE [Suspect]
     Route: 048
  7. DEBRIDAT [Concomitant]
     Dosage: AS REQUIRED

REACTIONS (7)
  - Fall [Recovered/Resolved]
  - Myelodysplastic syndrome [Unknown]
  - Anaemia macrocytic [Unknown]
  - Hyponatraemia [Unknown]
  - Confusional state [Recovered/Resolved]
  - Inflammation [Unknown]
  - Atrial fibrillation [Unknown]
